FAERS Safety Report 22151053 (Version 1)
Quarter: 2023Q1

REPORT INFORMATION
  Report Type: Spontaneous
  Country: US (occurrence: US)
  Receive Date: 20230329
  Receipt Date: 20230329
  Transmission Date: 20230418
  Serious: Yes (Hospitalization)
  Sender: FDA-Public Use
  Company Number: None

PATIENT
  Age: 62 Year
  Sex: Female

DRUGS (2)
  1. LIDOCAINE HYDROCHLORIDE [Suspect]
     Active Substance: LIDOCAINE HYDROCHLORIDE
     Indication: Surgery
     Route: 058
  2. EPINEPHRINE [Concomitant]
     Active Substance: EPINEPHRINE
     Indication: Surgery
     Route: 058

REACTIONS (1)
  - Stress cardiomyopathy [Recovering/Resolving]
